FAERS Safety Report 23153269 (Version 1)
Quarter: 2023Q4

REPORT INFORMATION
  Report Type: Spontaneous
  Country: US (occurrence: US)
  Receive Date: 20231107
  Receipt Date: 20231107
  Transmission Date: 20240110
  Serious: No
  Sender: FDA-Public Use
  Company Number: US-ELI_LILLY_AND_COMPANY-US202311001923

PATIENT
  Age: 64 Year
  Sex: Female

DRUGS (3)
  1. MOUNJARO [Suspect]
     Active Substance: TIRZEPATIDE
     Indication: Type 2 diabetes mellitus
     Dosage: 2.5 MG, UNKNOWN
     Route: 065
     Dates: start: 20231001
  2. MOUNJARO [Suspect]
     Active Substance: TIRZEPATIDE
     Dosage: 5 MG, UNKNOWN
     Route: 065
     Dates: start: 20231026, end: 20231101
  3. LOSARTAN [Concomitant]
     Active Substance: LOSARTAN
     Indication: Type 2 diabetes mellitus

REACTIONS (3)
  - Anxiety [Not Recovered/Not Resolved]
  - Dizziness [Not Recovered/Not Resolved]
  - Tremor [Not Recovered/Not Resolved]

NARRATIVE: CASE EVENT DATE: 20231026
